FAERS Safety Report 8496932-8 (Version None)
Quarter: 2012Q3

REPORT INFORMATION
  Report Type: 
  Country: None (occurrence: None)
  Receive Date: 20120709
  Receipt Date: 20120625
  Transmission Date: 20120928
  Serious: Yes (Other)
  Sender: FDA-Public Use
  Company Number: CHPA2012US013977

PATIENT
  Sex: Female

DRUGS (1)
  1. FERROUS SULFATE TAB [Suspect]
     Indication: MINERAL SUPPLEMENTATION
     Dosage: 1 DF, QD
     Route: 048
     Dates: start: 20060101

REACTIONS (4)
  - HEPATIC MASS [None]
  - INCORRECT DRUG ADMINISTRATION DURATION [None]
  - COLON CANCER [None]
  - MALAISE [None]
